FAERS Safety Report 16547914 (Version 1)
Quarter: 2019Q3

REPORT INFORMATION
  Report Type: Spontaneous
  Country: US (occurrence: US)
  Receive Date: 20190709
  Receipt Date: 20190709
  Transmission Date: 20191004
  Serious: Yes (Other)
  Sender: FDA-Public Use
  Company Number: US-BAUSCH-BL-2019-019248

PATIENT
  Age: 21 Year
  Sex: Female

DRUGS (4)
  1. DEXAMETHASONE. [Suspect]
     Active Substance: DEXAMETHASONE
     Indication: INFERTILITY
  2. CLOMIPHENE [Suspect]
     Active Substance: CLOMIPHENE
     Indication: INFERTILITY
  3. CLOMIPHENE [Suspect]
     Active Substance: CLOMIPHENE
     Indication: MENSTRUATION IRREGULAR
     Route: 065
  4. DEXAMETHASONE. [Suspect]
     Active Substance: DEXAMETHASONE
     Indication: MENSTRUATION IRREGULAR
     Route: 065

REACTIONS (1)
  - Weight increased [Unknown]
